FAERS Safety Report 21812874 (Version 2)
Quarter: 2023Q1

REPORT INFORMATION
  Report Type: Spontaneous
  Country: US (occurrence: US)
  Receive Date: 20230103
  Receipt Date: 20230116
  Transmission Date: 20230418
  Serious: Yes (Hospitalization, Other)
  Sender: FDA-Public Use
  Company Number: US-UNITED THERAPEUTICS-UNT-2022-032158

PATIENT
  Age: 69 Year
  Sex: Male
  Weight: 81.179 kg

DRUGS (3)
  1. TYVASO [Suspect]
     Active Substance: TREPROSTINIL
     Indication: Pulmonary arterial hypertension
     Dosage: 90 ?G, QID
  2. TYVASO [Suspect]
     Active Substance: TREPROSTINIL
     Dosage: UNK
     Dates: start: 20170127
  3. ALCOHOL [Suspect]
     Active Substance: ALCOHOL
     Indication: Product used for unknown indication
     Dosage: UNK
     Route: 065

REACTIONS (6)
  - Chronic hepatitis C [Unknown]
  - Urinary tract infection [Recovered/Resolved]
  - Alcoholic liver disease [Unknown]
  - Device electrical finding [Unknown]
  - Device power source issue [Unknown]
  - Off label use [Unknown]

NARRATIVE: CASE EVENT DATE: 20221201
